FAERS Safety Report 24828670 (Version 3)
Quarter: 2025Q1

REPORT INFORMATION
  Report Type: Spontaneous
  Country: US (occurrence: US)
  Receive Date: 20250110
  Receipt Date: 20250120
  Transmission Date: 20250408
  Serious: No
  Sender: ROCHE
  Company Number: US-ROCHE-10000172794

PATIENT
  Age: 55 Year
  Sex: Male
  Weight: 79.37 kg

DRUGS (3)
  1. XOLAIR [Suspect]
     Active Substance: OMALIZUMAB
     Indication: Asthma
     Dosage: ONE 300 MG AI AND ONE 75 MG AI PER DOSE (EVERY OTHER WEEK)
     Route: 058
     Dates: start: 20240620
  2. XOLAIR [Suspect]
     Active Substance: OMALIZUMAB
     Indication: Bronchiectasis
     Dosage: ONE 300 MG AI AND ONE 75 MG AI PER DOSE (EVERY OTHER WEEK)
     Route: 058
     Dates: start: 20240620
  3. XOLAIR [Suspect]
     Active Substance: OMALIZUMAB
     Dosage: 300MG/2ML
     Route: 058
     Dates: start: 202406

REACTIONS (3)
  - Accidental exposure to product [Unknown]
  - Product complaint [Unknown]
  - No adverse event [Unknown]

NARRATIVE: CASE EVENT DATE: 20250103
